FAERS Safety Report 11127999 (Version 2)
Quarter: 2015Q2

REPORT INFORMATION
  Report Type: Other
  Country: GB (occurrence: GB)
  Receive Date: 20150521
  Receipt Date: 20150603
  Transmission Date: 20150821
  Serious: Yes (Other)
  Sender: FDA-Public Use
  Company Number: GB-MYLANLABS-2015M1015624

PATIENT

DRUGS (8)
  1. LANSOPRAZOLE. [Concomitant]
     Active Substance: LANSOPRAZOLE
     Dosage: 30 MG, QD (EACH MORNING)
     Route: 048
     Dates: start: 20150114
  2. METHYLPHENIDATE [Concomitant]
     Active Substance: METHYLPHENIDATE
     Dosage: 6 DF, QD
     Route: 048
     Dates: start: 20150407
  3. AMITRIPTYLINE [Concomitant]
     Active Substance: AMITRIPTYLINE
     Dosage: 25 MG, BID (NIGHTLY)
     Route: 048
     Dates: start: 20150407
  4. NAPROXEN. [Concomitant]
     Active Substance: NAPROXEN
     Dosage: 500 MG, BID
     Route: 048
     Dates: start: 20141110
  5. TRIMETHOPRIM. [Concomitant]
     Active Substance: TRIMETHOPRIM
     Dosage: 200 MG, BID
     Dates: start: 20150421
  6. CODEINE [Concomitant]
     Active Substance: CODEINE
     Dosage: 30 MG, UNK (ONE OR TWO TO BE TAKEN EVERY FOUR HOURS)
     Route: 048
     Dates: start: 20150407
  7. SIMVASTATIN. [Suspect]
     Active Substance: SIMVASTATIN
     Indication: HYPERCHOLESTEROLAEMIA
     Dosage: UNK
     Route: 048
     Dates: start: 20150315, end: 20150420
  8. GAVISCON [Concomitant]
     Active Substance: ALUMINUM HYDROXIDE\MAGNESIUM CARBONATE
     Dosage: 5 ML, UNK (ONE OR TWO SPOONFULS IF NEEDED UP TO 4 TIMES A DAY)
     Route: 048
     Dates: start: 20141020

REACTIONS (1)
  - Nightmare [Recovered/Resolved]
